FAERS Safety Report 5202692-6 (Version None)
Quarter: 2006Q4

REPORT INFORMATION
  Report Type: 
  Country: None (occurrence: None)
  Receive Date: 20061018
  Receipt Date: 20050117
  Transmission Date: 20070319
  Serious: Yes (Other)
  Sender: FDA-Public Use
  Company Number: PHEH2005US01026

PATIENT
  Age: 63 Year
  Sex: Male

DRUGS (2)
  1. ZOMETA [Suspect]
     Dosage: 4 MG OVER 30 MINUTES
  2. CHEMOTHERAPEUTICS, OTHER (CHEMOTHERAPEUTICS, OTHER) [Concomitant]

REACTIONS (1)
  - FATIGUE [None]
